FAERS Safety Report 24653979 (Version 3)
Quarter: 2025Q3

REPORT INFORMATION
  Report Type: Other
  Country: US (occurrence: US)
  Receive Date: 20241122
  Receipt Date: 20250831
  Transmission Date: 20251020
  Serious: Yes (Death, Hospitalization, Other)
  Sender: MADRIGAL PHARMACEUTICALS
  Company Number: US-MADRIGAL PHARMACEUTICALS, INC-2024REZ3121

PATIENT

DRUGS (16)
  1. REZDIFFRA [Suspect]
     Active Substance: RESMETIROM
     Indication: Metabolic dysfunction-associated steatohepatitis
     Dosage: 100 MILLIGRAM, QD
     Route: 048
     Dates: start: 20240723, end: 202411
  2. REZDIFFRA [Suspect]
     Active Substance: RESMETIROM
     Dosage: 100 MILLIGRAM, QD
     Route: 048
     Dates: start: 2024, end: 202412
  3. REZDIFFRA [Suspect]
     Active Substance: RESMETIROM
     Dosage: 100 MILLIGRAM, QD
     Route: 048
     Dates: end: 20250123
  4. FLUOROURACIL [Suspect]
     Active Substance: FLUOROURACIL
     Indication: Rectal cancer
     Dates: start: 202410, end: 202410
  5. MITOMYCIN [Suspect]
     Active Substance: MITOMYCIN
     Dates: start: 202410, end: 202410
  6. ASPIRIN [Concomitant]
     Active Substance: ASPIRIN
  7. B12 [Concomitant]
  8. BACLOFEN [Concomitant]
     Active Substance: BACLOFEN
  9. DOXYCYCLINE HYCLATE [Concomitant]
     Active Substance: DOXYCYCLINE HYCLATE
  10. VITAMIN C [Concomitant]
     Active Substance: ASCORBIC ACID
  11. VITAMIN D3 [Concomitant]
     Active Substance: CHOLECALCIFEROL
  12. HYDROCODONE [Concomitant]
     Active Substance: HYDROCODONE
  13. HYDROCHLOROTHIAZIDE\OLMESARTAN MEDOXOMIL [Concomitant]
     Active Substance: HYDROCHLOROTHIAZIDE\OLMESARTAN MEDOXOMIL
  14. ATORVASTATIN [Concomitant]
     Active Substance: ATORVASTATIN
  15. CARVEDILOL [Concomitant]
     Active Substance: CARVEDILOL
  16. TAMSULOSIN [Concomitant]
     Active Substance: TAMSULOSIN

REACTIONS (10)
  - Hepatic failure [Fatal]
  - Suspected drug-induced liver injury [Unknown]
  - Urosepsis [Unknown]
  - Rectal cancer [Unknown]
  - Cholangitis [Unknown]
  - Cholecystitis [Unknown]
  - Fall [Unknown]
  - Nausea [Not Recovered/Not Resolved]
  - Therapy interrupted [Unknown]
  - Insurance issue [Unknown]

NARRATIVE: CASE EVENT DATE: 20240101
